FAERS Safety Report 4285790-3 (Version None)
Quarter: 2004Q1

REPORT INFORMATION
  Report Type: 
  Country: None (occurrence: None)
  Receive Date: 20040203
  Receipt Date: 20040129
  Transmission Date: 20041129
  Serious: Yes (Hospitalization)
  Sender: FDA-Public Use
  Company Number: FR-JNJFOC-20040102003

PATIENT
  Age: 21 Year
  Sex: Male
  Weight: 67 kg

DRUGS (5)
  1. REMICADE [Suspect]
     Indication: ANKYLOSING SPONDYLITIS
     Dosage: 335 MG, 1 IN 1 DAY, INTRAVENOUS; 330 MG, 1 IN 1 DAY, INTRAVENOUS; 335 MG, 1 IN 1 DAY, INTRAVENOUS
     Route: 042
     Dates: start: 20030723, end: 20030723
  2. REMICADE [Suspect]
     Indication: ANKYLOSING SPONDYLITIS
     Dosage: 335 MG, 1 IN 1 DAY, INTRAVENOUS; 330 MG, 1 IN 1 DAY, INTRAVENOUS; 335 MG, 1 IN 1 DAY, INTRAVENOUS
     Route: 042
     Dates: start: 20030808, end: 20030808
  3. REMICADE [Suspect]
     Indication: ANKYLOSING SPONDYLITIS
     Dosage: 335 MG, 1 IN 1 DAY, INTRAVENOUS; 330 MG, 1 IN 1 DAY, INTRAVENOUS; 335 MG, 1 IN 1 DAY, INTRAVENOUS
     Route: 042
     Dates: start: 20030905, end: 20030905
  4. METHOTREXATE [Concomitant]
  5. PREDNISONE [Concomitant]

REACTIONS (4)
  - DYSACUSIS [None]
  - MENINGITIS [None]
  - PURPURA [None]
  - SEPSIS [None]
